FAERS Safety Report 9664896 (Version 1)
Quarter: 2013Q4

REPORT INFORMATION
  Report Type: Spontaneous
  Country: JP (occurrence: JP)
  Receive Date: 20131101
  Receipt Date: 20131101
  Transmission Date: 20140711
  Serious: Yes (Other)
  Sender: FDA-Public Use
  Company Number: JP-GLAXOSMITHKLINE-B0938130A

PATIENT
  Sex: Male

DRUGS (2)
  1. ZANTAC 150 (RANITIDINE HYDROCHLORIDE) [Suspect]
     Indication: RENAL IMPAIRMENT
     Dosage: 300MG PER DAY
     Route: 048
  2. DIURETICS [Concomitant]
     Route: 048

REACTIONS (3)
  - Urinary retention [Unknown]
  - Blood pressure increased [Unknown]
  - Overdose [Unknown]
